FAERS Safety Report 24025686 (Version 2)
Quarter: 2024Q2

REPORT INFORMATION
  Report Type: Report from Study
  Country: CL (occurrence: CL)
  Receive Date: 20240628
  Receipt Date: 20240628
  Transmission Date: 20240715
  Serious: No
  Sender: FDA-Public Use
  Company Number: CL-ROCHE-3424576

PATIENT
  Age: 62 Year
  Sex: Female

DRUGS (1)
  1. PHESGO [Suspect]
     Active Substance: HYALURONIDASE-ZZXF\PERTUZUMAB\TRASTUZUMAB
     Indication: HER2 positive breast cancer
     Dosage: DOSE WAS NOT REPORTED, DATE OF THE LAST ADMINISTRATION: 01/SEP/2023
     Route: 065
     Dates: start: 20230705

REACTIONS (1)
  - Eyelid irritation [Unknown]

NARRATIVE: CASE EVENT DATE: 20230912
